FAERS Safety Report 6039407-8 (Version None)
Quarter: 2009Q1

REPORT INFORMATION
  Report Type: 
  Country: None (occurrence: None)
  Receive Date: 20090115
  Receipt Date: 20090105
  Transmission Date: 20090719
  Serious: Yes (Other)
  Sender: FDA-Public Use
  Company Number: NL-MERCK-0901NLD00003

PATIENT
  Age: 49 Year
  Sex: Female

DRUGS (7)
  1. JANUVIA [Suspect]
     Route: 048
     Dates: start: 20080425, end: 20080709
  2. VALPROATE SODIUM [Concomitant]
     Route: 048
  3. LEVOTHYROXINE SODIUM [Concomitant]
     Route: 048
  4. DESMOPRESSIN [Concomitant]
  5. HYDROCORTISONE [Concomitant]
     Route: 048
  6. SIMVASTATIN [Concomitant]
     Route: 048
  7. METFORMIN [Concomitant]
     Route: 048

REACTIONS (1)
  - MENINGIOMA [None]
